FAERS Safety Report 7326402-1 (Version None)
Quarter: 2011Q1

REPORT INFORMATION
  Report Type: 
  Country: None (occurrence: None)
  Receive Date: 20110302
  Receipt Date: 20110221
  Transmission Date: 20110831
  Serious: Yes (Death, Life-Threatening, Hospitalization)
  Sender: FDA-Public Use
  Company Number: JP-BRISTOL-MYERS SQUIBB COMPANY-14932446

PATIENT
  Age: 49 Year
  Sex: Female

DRUGS (4)
  1. FUROSEMIDE [Suspect]
  2. POTASSIUM CANRENOATE [Suspect]
     Dosage: INJ
     Route: 042
  3. TAXOL [Suspect]
     Indication: GASTRIC CANCER
     Route: 041
     Dates: end: 20091221
  4. FLURBIPROFEN [Suspect]
     Dosage: INJ
     Route: 042

REACTIONS (5)
  - NEOPLASM MALIGNANT [None]
  - TOXIC EPIDERMAL NECROLYSIS [None]
  - PNEUMONIA ASPIRATION [None]
  - STEVENS-JOHNSON SYNDROME [None]
  - GASTRIC CANCER [None]
